FAERS Safety Report 9107129 (Version 1)
Quarter: 2013Q1

REPORT INFORMATION
  Report Type: Spontaneous
  Country: US (occurrence: US)
  Receive Date: 20130221
  Receipt Date: 20130221
  Transmission Date: 20140127
  Serious: Yes (Death, Hospitalization)
  Sender: FDA-Public Use
  Company Number: US-BRISTOL-MYERS SQUIBB COMPANY-17374455

PATIENT
  Age: 68 Year
  Sex: Female

DRUGS (5)
  1. SPRYCEL [Suspect]
     Indication: ACUTE MYELOID LEUKAEMIA
     Dosage: OCT12 OR NOV12
     Dates: start: 2012
  2. SCOPOLAMINE [Concomitant]
     Indication: VOMITING
  3. PROCHLORPERAZINE [Concomitant]
     Indication: NAUSEA
     Dosage: INJ
  4. PRAMOXINE [Concomitant]
     Indication: HAEMORRHOIDS
  5. METAMUCIL [Concomitant]

REACTIONS (4)
  - Malignant neoplasm progression [Fatal]
  - Haemorrhoids [Unknown]
  - Haematoma [Unknown]
  - Large intestinal ulcer [Unknown]
